FAERS Safety Report 21354449 (Version 2)
Quarter: 2022Q4

REPORT INFORMATION
  Report Type: Report from Study
  Country: US (occurrence: US)
  Receive Date: 20220920
  Receipt Date: 20221117
  Transmission Date: 20230113
  Serious: Yes (Other)
  Sender: FDA-Public Use
  Company Number: US-BRISTOL-MYERS SQUIBB COMPANY-2022-046346

PATIENT
  Age: 57 Year
  Sex: Male
  Weight: 84.82 kg

DRUGS (2)
  1. POMALYST [Suspect]
     Active Substance: POMALIDOMIDE
     Indication: Plasma cell myeloma refractory
     Dosage: TAKE ONE CAPSULE DAILY, EXP DATE: 28-FEB-2026
     Route: 048
     Dates: start: 20220316
  2. POMALYST [Suspect]
     Active Substance: POMALIDOMIDE
     Indication: Chronic kidney disease

REACTIONS (3)
  - Pruritus [Not Recovered/Not Resolved]
  - Erectile dysfunction [Unknown]
  - Fatigue [Unknown]
